FAERS Safety Report 7564753-6 (Version None)
Quarter: 2011Q2

REPORT INFORMATION
  Report Type: 
  Country: None (occurrence: None)
  Receive Date: 20110622
  Receipt Date: 20101102
  Transmission Date: 20111010
  Serious: Yes (Other)
  Sender: FDA-Public Use
  Company Number: US-MYLANLABS-2010S1019617

PATIENT
  Age: 51 Year
  Sex: Male
  Weight: 97.98 kg

DRUGS (3)
  1. CLOZAPINE [Suspect]
     Indication: SCHIZOPHRENIA
     Route: 048
     Dates: start: 20070601, end: 20101001
  2. HALOPERIDOL [Concomitant]
  3. AMBIEN [Concomitant]

REACTIONS (1)
  - GRANULOCYTOPENIA [None]
